FAERS Safety Report 9886498 (Version 2)
Quarter: 2014Q3

REPORT INFORMATION
  Report Type: Spontaneous
  Country: US (occurrence: US)
  Receive Date: 20140210
  Receipt Date: 20140813
  Transmission Date: 20150326
  Serious: Yes (Hospitalization, Other)
  Sender: FDA-Public Use
  Company Number: US-009507513-1402USA004193

PATIENT
  Sex: Female
  Weight: 63.5 kg

DRUGS (1)
  1. NUVARING [Suspect]
     Active Substance: ETHINYL ESTRADIOL\ETONOGESTREL
     Indication: CONTRACEPTION
     Dosage: UNK
     Route: 067
     Dates: start: 201310

REACTIONS (7)
  - Hypercoagulation [Unknown]
  - Pulmonary embolism [Unknown]
  - Anaemia [Unknown]
  - Renal cyst [Unknown]
  - Pulmonary mass [Unknown]
  - Vaginal haemorrhage [Unknown]
  - Urinary tract infection [Unknown]

NARRATIVE: CASE EVENT DATE: 201310
